FAERS Safety Report 15280582 (Version 1)
Quarter: 2018Q3

REPORT INFORMATION
  Report Type: Spontaneous
  Country: US (occurrence: US)
  Receive Date: 20180731
  Receipt Date: 20180731
  Transmission Date: 20181010
  Serious: Yes (Other)
  Sender: FDA-Public Use
  Company Number: None

PATIENT
  Age: 59 Year
  Sex: Male
  Weight: 99 kg

DRUGS (6)
  1. RITALIN [Concomitant]
     Active Substance: METHYLPHENIDATE HYDROCHLORIDE
  2. HUMIRA [Concomitant]
     Active Substance: ADALIMUMAB
  3. NUVIGIL [Concomitant]
     Active Substance: ARMODAFINIL
  4. CROMOLYN SODIUM ORAL SOLUTION (CONCENTRATE) [Suspect]
     Active Substance: CROMOLYN SODIUM
     Indication: AUTOIMMUNE DISORDER
     Dosage: ?          QUANTITY:4 AMPULE (5 ML);?
     Route: 048
  5. CROMOLYN [Concomitant]
     Active Substance: CROMOLYN
  6. CROMOLYN SODIUM ORAL SOLUTION (CONCENTRATE) [Suspect]
     Active Substance: CROMOLYN SODIUM
     Indication: GASTROINTESTINAL DISORDER
     Dosage: ?          QUANTITY:4 AMPULE (5 ML);?
     Route: 048

REACTIONS (9)
  - Product substitution issue [None]
  - Gastrointestinal haemorrhage [None]
  - Haematochezia [None]
  - Oesophageal oedema [None]
  - Cough [None]
  - Product preparation error [None]
  - Product taste abnormal [None]
  - Choking [None]
  - Oesophageal irritation [None]

NARRATIVE: CASE EVENT DATE: 20180731
